FAERS Safety Report 9154221 (Version 1)
Quarter: 2013Q1

REPORT INFORMATION
  Report Type: Spontaneous
  Country: US (occurrence: None)
  Receive Date: 20130306
  Receipt Date: 20130306
  Transmission Date: 20140127
  Serious: Yes (Other)
  Sender: FDA-Public Use
  Company Number: None

PATIENT
  Sex: Male

DRUGS (1)
  1. XELODA [Suspect]
     Indication: COLON CANCER
     Dosage: 500MG 2BID 14 DAYS, 7OFF PO
     Route: 048
     Dates: start: 20121026, end: 20130301

REACTIONS (1)
  - Amnesia [None]
